FAERS Safety Report 6996450-X (Version None)
Quarter: 2010Q3

REPORT INFORMATION
  Report Type: 
  Country: None (occurrence: None)
  Receive Date: 20100918
  Receipt Date: 20090330
  Transmission Date: 20110219
  Serious: No
  Sender: FDA-Public Use
  Company Number: US-WYE-H08336909

PATIENT
  Sex: Female
  Weight: 88.53 kg

DRUGS (7)
  1. PREMPRO [Suspect]
     Indication: HORMONE REPLACEMENT THERAPY
     Route: 048
     Dates: start: 20090209
  2. KLONOPIN [Concomitant]
  3. COMBIVENT [Concomitant]
  4. SINGULAIR [Concomitant]
  5. ADVAIR DISKUS 100/50 [Concomitant]
  6. CELEXA [Concomitant]
     Route: 065
     Dates: start: 20090119
  7. THEOPHYLLINE [Concomitant]

REACTIONS (5)
  - ABDOMINAL PAIN [None]
  - CRYING [None]
  - HEADACHE [None]
  - NAUSEA [None]
  - VAGINAL HAEMORRHAGE [None]
